FAERS Safety Report 8881874 (Version 1)
Quarter: 2012Q4

REPORT INFORMATION
  Report Type: 
  Country: US (occurrence: US)
  Receive Date: 20121101
  Receipt Date: 20121101
  Transmission Date: 20130627
  Serious: No
  Sender: FDA-Public Use
  Company Number: US-PFIZER INC-2012269441

PATIENT
  Sex: Female

DRUGS (1)
  1. ADVIL [Suspect]
     Indication: PAIN
     Dosage: 200 mg, UNK
     Route: 048

REACTIONS (3)
  - Drug ineffective [Unknown]
  - Urticaria [Unknown]
  - Swelling face [Unknown]
